FAERS Safety Report 8456255-X (Version None)
Quarter: 2012Q2

REPORT INFORMATION
  Report Type: 
  Country: None (occurrence: None)
  Receive Date: 20120621
  Receipt Date: 20120613
  Transmission Date: 20120825
  Serious: Yes (Death, Other)
  Sender: FDA-Public Use
  Company Number: DE-MPIJNJ-2012-04246

PATIENT

DRUGS (4)
  1. THALIDOMIDE [Suspect]
     Indication: SALIVARY GLAND CANCER
  2. VELCADE [Suspect]
     Indication: MULTIPLE MYELOMA
  3. VELCADE [Suspect]
     Indication: SALIVARY GLAND CANCER
  4. THALIDOMIDE [Suspect]
     Indication: MULTIPLE MYELOMA

REACTIONS (2)
  - NEOPLASM MALIGNANT [None]
  - SALIVARY GLAND CANCER [None]
